FAERS Safety Report 7738674-X (Version None)
Quarter: 2011Q3

REPORT INFORMATION
  Report Type: 
  Country: None (occurrence: None)
  Receive Date: 20110908
  Receipt Date: 20110906
  Transmission Date: 20111222
  Serious: No
  Sender: FDA-Public Use
  Company Number: US-PFIZER INC-2011208623

PATIENT
  Sex: Female
  Weight: 43.084 kg

DRUGS (3)
  1. ADVIL CONGESTION RELIEF [Suspect]
     Indication: HEADACHE
  2. ADVIL CONGESTION RELIEF [Suspect]
     Indication: SINUS DISORDER
     Dosage: 200/10 MG, AS NEEDED
     Route: 048
     Dates: start: 20110905
  3. ADVIL CONGESTION RELIEF [Suspect]
     Indication: NASAL CONGESTION

REACTIONS (1)
  - DRUG INEFFECTIVE [None]
